FAERS Safety Report 6114302-4 (Version None)
Quarter: 2009Q1

REPORT INFORMATION
  Report Type: 
  Country: None (occurrence: None)
  Receive Date: 20090312
  Receipt Date: 20081218
  Transmission Date: 20090719
  Serious: No
  Sender: FDA-Public Use
  Company Number: US-ABBOTT-08P-163-0494161-00

PATIENT
  Sex: Female

DRUGS (1)
  1. DEPAKOTE [Suspect]
     Indication: CONVULSION
     Dates: start: 19970101, end: 19970101

REACTIONS (4)
  - CHEST DISCOMFORT [None]
  - HEADACHE [None]
  - MYALGIA [None]
  - POOR QUALITY SLEEP [None]
